FAERS Safety Report 13258039 (Version 1)
Quarter: 2017Q1

REPORT INFORMATION
  Report Type: Spontaneous
  Country: JP (occurrence: JP)
  Receive Date: 20170221
  Receipt Date: 20170221
  Transmission Date: 20170428
  Serious: Yes (Other)
  Sender: FDA-Public Use
  Company Number: JP-009507513-1702JPN004263

PATIENT
  Age: 86 Year
  Sex: Female

DRUGS (2)
  1. BONALON [Suspect]
     Active Substance: ALENDRONATE SODIUM
     Indication: OSTEOPOROSIS
     Dosage: 35 MG, QW
     Route: 048
     Dates: start: 20160613, end: 20170130
  2. MOHRUS L [Concomitant]
     Active Substance: KETOPROFEN
     Dosage: 40 MG, PRN
     Route: 061

REACTIONS (2)
  - Gastrointestinal haemorrhage [Recovered/Resolved]
  - Platelet count decreased [Not Recovered/Not Resolved]

NARRATIVE: CASE EVENT DATE: 20170130
